FAERS Safety Report 17053375 (Version 1)
Quarter: 2019Q4

REPORT INFORMATION
  Report Type: Spontaneous
  Country: FR (occurrence: FR)
  Receive Date: 20191120
  Receipt Date: 20191120
  Transmission Date: 20200122
  Serious: Yes (Other)
  Sender: FDA-Public Use
  Company Number: FR-MYLANLABS-2019M1110349

PATIENT
  Age: 53 Year
  Sex: Female

DRUGS (5)
  1. GABAPENTIN. [Suspect]
     Active Substance: GABAPENTIN
     Dosage: UNK
  2. GABAPENTIN. [Suspect]
     Active Substance: GABAPENTIN
     Indication: RESTLESS LEGS SYNDROME
     Dosage: 2 DF, QD, 2 AT NOON
     Route: 065
  3. GABAPENTINE [Suspect]
     Active Substance: GABAPENTIN
     Indication: RESTLESS LEGS SYNDROME
     Dosage: 2 DF, QD, 2 IN THE EVENING
     Route: 065
  4. NEUPRO [Concomitant]
     Active Substance: ROTIGOTINE
     Dosage: UNK, QD
  5. GABAPENTIN. [Suspect]
     Active Substance: GABAPENTIN
     Dosage: 600MG ONLY IN THE EVENING
     Route: 065

REACTIONS (1)
  - Haemorrhage [Unknown]
